FAERS Safety Report 5866003-5 (Version None)
Quarter: 2008Q3

REPORT INFORMATION
  Report Type: 
  Country: None (occurrence: None)
  Receive Date: 20080829
  Receipt Date: 20080821
  Transmission Date: 20090109
  Serious: Yes (Hospitalization)
  Sender: FDA-Public Use
  Company Number: AU-ABBOTT-08P-008-0471845-00

PATIENT
  Sex: Male

DRUGS (2)
  1. LUCRIN DEPOT 22.5 MG [Suspect]
     Indication: PROSTATE CANCER
     Route: 050
     Dates: start: 20070830, end: 20080527
  2. CYPROTERONE [Concomitant]
     Indication: ANTIANDROGEN THERAPY
     Dates: start: 20080320, end: 20080720

REACTIONS (1)
  - JAUNDICE [None]
